FAERS Safety Report 8209485-6 (Version None)
Quarter: 2012Q1

REPORT INFORMATION
  Report Type: 
  Country: None (occurrence: None)
  Receive Date: 20120314
  Receipt Date: 20120302
  Transmission Date: 20120608
  Serious: Yes (Hospitalization, Other)
  Sender: FDA-Public Use
  Company Number: AU-PFIZER INC-2012064835

PATIENT
  Age: 52 Year
  Sex: Female

DRUGS (19)
  1. FLUOXETINE HCL [Suspect]
     Dosage: UNK
  2. DIAZEPAM [Concomitant]
     Dosage: 5 MG, AS NEEDED
  3. ERYTHROMYCIN [Concomitant]
     Dosage: UNK
  4. TRAMADOL [Concomitant]
     Indication: SOMATOFORM DISORDER
     Dosage: UNK
  5. PRAVASTATIN [Concomitant]
     Dosage: 40 MG, UNK
  6. CELECOXIB [Concomitant]
     Indication: SOMATOFORM DISORDER
     Dosage: 200 MG AD LIB
  7. PAROXETINE HCL [Suspect]
     Indication: STRESS AT WORK
     Dosage: 60 MG, 1X/DAY
  8. IRBESARTAN [Concomitant]
     Indication: HYPERTENSION
     Dosage: 300 MG, 1X/DAY
  9. TENORMIN [Concomitant]
     Dosage: 12.5 MG, 1X/DAY
  10. LEVOTHYROXINE SODIUM [Concomitant]
     Dosage: 100 MG, 1X/DAY
  11. CITALOPRAM HYDROBROMIDE [Suspect]
     Dosage: TITRATED UP TO 60 MG, 1X/DAY
  12. METOCLOPRAMIDE [Concomitant]
     Dosage: INTERMITTENT
  13. PREMARIN [Concomitant]
     Dosage: 0.625 MG, UNK
  14. VALACICLOVIR [Concomitant]
     Indication: HERPES ZOSTER
     Dosage: UNK
  15. PENICILLIN [Concomitant]
     Dosage: UNK
  16. ATORVASTATIN [Concomitant]
     Indication: HYPERTENSION
     Dosage: SOMETIMES
  17. VENLAFAXINE HCL [Suspect]
     Indication: STRESS AT WORK
     Dosage: 300 MG DAILY
  18. CEPHALEXIN [Concomitant]
     Dosage: UNK
  19. FLUTICASONE PROPIONATE/SALMETEROL [Concomitant]
     Dosage: UNK

REACTIONS (3)
  - SUICIDAL BEHAVIOUR [None]
  - AKATHISIA [None]
  - PHYSICAL ASSAULT [None]
